FAERS Safety Report 20349768 (Version 5)
Quarter: 2022Q2

REPORT INFORMATION
  Report Type: Spontaneous
  Country: FR (occurrence: FR)
  Receive Date: 20220119
  Receipt Date: 20220510
  Transmission Date: 20220721
  Serious: Yes (Other)
  Sender: FDA-Public Use
  Company Number: FR-ADVANZ PHARMA-202201000272

PATIENT

DRUGS (8)
  1. HYDROXYCHLOROQUINE SULFATE [Suspect]
     Active Substance: HYDROXYCHLOROQUINE SULFATE
     Indication: Polyarthritis
     Dosage: 1 DOSAGE FORM, BID (ONE TABLET IN THE MORNING AND 1 EVENING,)
     Route: 065
     Dates: start: 1997, end: 2017
  2. HYDROXYCHLOROQUINE SULFATE [Suspect]
     Active Substance: HYDROXYCHLOROQUINE SULFATE
     Indication: SLE arthritis
     Dosage: UNK, QD
     Route: 065
     Dates: start: 2017, end: 2017
  3. HYDROXYCHLOROQUINE SULFATE [Suspect]
     Active Substance: HYDROXYCHLOROQUINE SULFATE
     Indication: Rheumatoid arthritis
     Dosage: 2 DOSAGE FORM, QD
     Route: 065
  4. HYDROXYCHLOROQUINE SULFATE [Suspect]
     Active Substance: HYDROXYCHLOROQUINE SULFATE
     Dosage: UNK
     Route: 065
  5. KETOPROFEN [Suspect]
     Active Substance: KETOPROFEN
     Indication: Pelvic fracture
     Dosage: UNK
     Route: 065
  6. COVID-19 VACCINE [Concomitant]
     Indication: Immunisation
     Dosage: UNK
  7. BROMAZEPAM [Concomitant]
     Active Substance: BROMAZEPAM
     Indication: Skull fracture
     Dosage: UNK (SHE TAKES 1/4 TABLET)
  8. INFLUENZA VIRUS VACCINE [Concomitant]
     Active Substance: INFLUENZA VIRUS VACCINE

REACTIONS (19)
  - Lupus-like syndrome [Unknown]
  - Rheumatoid arthritis [Unknown]
  - Neutropenia [Unknown]
  - Skull fracture [Unknown]
  - Cataract [Unknown]
  - Polyarthritis [Unknown]
  - Systemic lupus erythematosus [Unknown]
  - Drug abuse [Unknown]
  - Arthralgia [Unknown]
  - Abdominal discomfort [Unknown]
  - Eye disorder [Unknown]
  - Dyspepsia [Unknown]
  - Fracture [Unknown]
  - Fall [Unknown]
  - Headache [Unknown]
  - Alopecia [Unknown]
  - Abdominal pain [Unknown]
  - Gastrointestinal pain [Unknown]
  - Drug ineffective [Unknown]

NARRATIVE: CASE EVENT DATE: 19970101
